FAERS Safety Report 9966670 (Version 2)
Quarter: 2014Q1

REPORT INFORMATION
  Report Type: Spontaneous
  Country: US (occurrence: US)
  Receive Date: 20140305
  Receipt Date: 20140305
  Transmission Date: 20141002
  Serious: No
  Sender: FDA-Public Use
  Company Number: US-ABBVIE-13P-163-1119409-00

PATIENT
  Age: 65 Year
  Sex: Female
  Weight: 55.39 kg

DRUGS (18)
  1. HUMIRA [Suspect]
     Indication: CROHN^S DISEASE
     Route: 058
     Dates: start: 20130712, end: 20130712
  2. ENTOCORT EC [Concomitant]
     Indication: CROHN^S DISEASE
     Dosage: DAILY
  3. CALCIUM [Concomitant]
     Indication: MINERAL SUPPLEMENTATION
     Dosage: DAILY
  4. IRON [Concomitant]
     Indication: MINERAL SUPPLEMENTATION
  5. FISH OIL [Concomitant]
     Indication: VITAMIN SUPPLEMENTATION
  6. MULTIVITAMIN [Concomitant]
     Indication: VITAMIN SUPPLEMENTATION
  7. DOXYCYCLINE [Concomitant]
     Indication: CROHN^S DISEASE
  8. MOTRIN [Concomitant]
     Indication: PAIN
  9. ATIVAN [Concomitant]
     Indication: ANXIETY
  10. ZANTAC [Concomitant]
     Indication: GASTROOESOPHAGEAL REFLUX DISEASE
  11. VITAMIN B12 [Concomitant]
     Indication: VITAMIN SUPPLEMENTATION
     Dosage: 1-2 MONTHLY
  12. CORDRAN [Concomitant]
     Indication: ROSACEA
     Route: 061
  13. TYLENOL [Concomitant]
     Indication: PAIN
  14. VITAMIN K [Concomitant]
     Indication: VITAMIN SUPPLEMENTATION
  15. VITAMIN K [Concomitant]
  16. VIVELLE DOT [Concomitant]
     Indication: PRODUCT USED FOR UNKNOWN INDICATION
  17. FERROUS GLUCONATE [Concomitant]
     Indication: PRODUCT USED FOR UNKNOWN INDICATION
  18. COMPAZINE [Concomitant]
     Indication: PRODUCT USED FOR UNKNOWN INDICATION

REACTIONS (4)
  - Paraesthesia [Not Recovered/Not Resolved]
  - Paraesthesia [Not Recovered/Not Resolved]
  - Injection site pain [Recovered/Resolved]
  - Injection site bruising [Recovered/Resolved]
